FAERS Safety Report 9369803 (Version 1)
Quarter: 2013Q2

REPORT INFORMATION
  Report Type: Spontaneous
  Country: NL (occurrence: NL)
  Receive Date: 20130626
  Receipt Date: 20130626
  Transmission Date: 20140414
  Serious: Yes (Other)
  Sender: FDA-Public Use
  Company Number: NL-PFIZER INC-2013189841

PATIENT
  Age: 70 Year
  Sex: Female

DRUGS (6)
  1. PANTOPRAZOLE [Suspect]
     Indication: PROPHYLAXIS AGAINST GASTROINTESTINAL ULCER
     Dosage: 20 MG, 1X/DAY
     Route: 048
     Dates: start: 2010
  2. LEKOVIT CA [Concomitant]
     Dosage: 1 DF, 2.5 G/800 IE
     Route: 048
     Dates: start: 20100909
  3. METOPROLOL [Concomitant]
     Dosage: 50 MG, 1X/DAY
     Route: 048
     Dates: start: 20060405
  4. LISINOPRIL [Concomitant]
     Dosage: 10 MG, 1X/DAY
     Route: 048
  5. PREDNISOLON [Concomitant]
     Dosage: 5 MG, 1X/DAY
     Route: 048
     Dates: start: 20100909
  6. ALENDRONATE SODIUM [Concomitant]
     Dosage: 70 MG, WEEKLY
     Route: 048

REACTIONS (2)
  - Uveitis [Recovered/Resolved]
  - Musculoskeletal pain [Recovered/Resolved]
